FAERS Safety Report 15953200 (Version 1)
Quarter: 2019Q1

REPORT INFORMATION
  Report Type: Spontaneous
  Country: US (occurrence: US)
  Receive Date: 20190211
  Receipt Date: 20190211
  Transmission Date: 20190417
  Serious: No
  Sender: FDA-Public Use
  Company Number: US-PFIZER INC-2019058248

PATIENT
  Age: 58 Year

DRUGS (1)
  1. GEMFIBROZIL. [Suspect]
     Active Substance: GEMFIBROZIL
     Dosage: UNK

REACTIONS (1)
  - Drug hypersensitivity [Unknown]
